FAERS Safety Report 23258864 (Version 4)
Quarter: 2024Q1

REPORT INFORMATION
  Report Type: Spontaneous
  Country: US (occurrence: US)
  Receive Date: 20231204
  Receipt Date: 20240112
  Transmission Date: 20240410
  Serious: Yes (Other)
  Sender: FDA-Public Use
  Company Number: US-Calliditas-2023CAL01526

PATIENT
  Age: 70 Year
  Sex: Male
  Weight: 75.3 kg

DRUGS (2)
  1. TARPEYO [Suspect]
     Active Substance: BUDESONIDE
     Indication: IgA nephropathy
     Route: 048
     Dates: start: 20231101
  2. PREDNISONE [Concomitant]
     Active Substance: PREDNISONE

REACTIONS (18)
  - Fatigue [Unknown]
  - Confusional state [Unknown]
  - Swelling face [Unknown]
  - Peripheral swelling [Unknown]
  - Peripheral swelling [Unknown]
  - Oedema [Unknown]
  - Urine abnormality [Unknown]
  - Constipation [Unknown]
  - Dizziness [Unknown]
  - Somnolence [Unknown]
  - Asthenia [Unknown]
  - Malaise [Unknown]
  - Hypertensive urgency [Unknown]
  - Fall [Unknown]
  - Gait disturbance [Unknown]
  - Renal impairment [Unknown]
  - End stage renal disease [Unknown]
  - Dialysis [Unknown]

NARRATIVE: CASE EVENT DATE: 20231201
